FAERS Safety Report 9728113 (Version 1)
Quarter: 2013Q4

REPORT INFORMATION
  Report Type: Spontaneous
  Country: DE (occurrence: None)
  Receive Date: 20131127
  Receipt Date: 20131127
  Transmission Date: 20140711
  Serious: Yes (Disabling, Other)
  Sender: FDA-Public Use
  Company Number: 2013/205

PATIENT
  Age: 70 Year
  Sex: Female

DRUGS (2)
  1. AMLODIPINE [Suspect]
     Indication: HYPERTENSIVE CRISIS
  2. UNSPECIFIED ANTIHYPERTENSIVES [Concomitant]

REACTIONS (11)
  - Dystonia [None]
  - Depressed mood [None]
  - Sleep disorder [None]
  - Decreased appetite [None]
  - Anxiety [None]
  - Dysphonia [None]
  - Dysarthria [None]
  - Bruxism [None]
  - Dysphagia [None]
  - Blepharospasm [None]
  - Torticollis [None]
